FAERS Safety Report 10554561 (Version 1)
Quarter: 2014Q4

REPORT INFORMATION
  Report Type: Spontaneous
  Country: US (occurrence: None)
  Receive Date: 20141029
  Receipt Date: 20141029
  Transmission Date: 20150529
  Serious: No
  Sender: FDA-Public Use
  Company Number: None

PATIENT
  Age: 22 Year
  Sex: Female
  Weight: 65.77 kg

DRUGS (1)
  1. NEXPLANON [Suspect]
     Active Substance: ETONOGESTREL

REACTIONS (11)
  - Anger [None]
  - Pain [None]
  - Vitamin B12 decreased [None]
  - Menorrhagia [None]
  - Fatigue [None]
  - Anaemia [None]
  - Device dislocation [None]
  - Menstrual disorder [None]
  - Complication of device removal [None]
  - Depression [None]
  - Contusion [None]
